FAERS Safety Report 15115697 (Version 1)
Quarter: 2018Q3

REPORT INFORMATION
  Report Type: Report from Study
  Country: US (occurrence: US)
  Receive Date: 20180706
  Receipt Date: 20180706
  Transmission Date: 20181010
  Serious: Yes (Hospitalization, Other)
  Sender: FDA-Public Use
  Company Number: US-GILEAD-2018-0348553

PATIENT
  Age: 72 Year
  Sex: Female

DRUGS (22)
  1. AMBRISENTAN [Suspect]
     Active Substance: AMBRISENTAN
     Indication: PULMONARY HYPERTENSION
     Dosage: 10 MG, QD
     Route: 048
     Dates: start: 201108
  2. AMBRISENTAN [Suspect]
     Active Substance: AMBRISENTAN
     Indication: CONNECTIVE TISSUE DISORDER
  3. LUTEIN                             /01638501/ [Concomitant]
     Active Substance: LUTEIN
  4. OMEPRAZOLE. [Concomitant]
     Active Substance: OMEPRAZOLE
  5. MAGNESIUM OXIDE. [Concomitant]
     Active Substance: MAGNESIUM OXIDE
  6. DIGOXIN. [Concomitant]
     Active Substance: DIGOXIN
  7. AMBRISENTAN [Suspect]
     Active Substance: AMBRISENTAN
     Indication: HEART DISEASE CONGENITAL
  8. LISINOPRIL. [Concomitant]
     Active Substance: LISINOPRIL
  9. FERROUS SULFATE. [Concomitant]
     Active Substance: FERROUS SULFATE
  10. CELEXA [Concomitant]
     Active Substance: CITALOPRAM HYDROBROMIDE
  11. VITAMIN C [Concomitant]
     Active Substance: ASCORBIC ACID
  12. VITAMIN D3 [Concomitant]
     Active Substance: CHOLECALCIFEROL
  13. OMEGA 3 FISH OIL                   /01334101/ [Concomitant]
     Active Substance: FISH OIL
  14. ADCIRCA [Concomitant]
     Active Substance: TADALAFIL
  15. LASIX [Concomitant]
     Active Substance: FUROSEMIDE
  16. OXYGEN. [Concomitant]
     Active Substance: OXYGEN
  17. FLORASTOR [Concomitant]
     Active Substance: SACCHAROMYCES CEREVISIAE
  18. AMBRISENTAN [Suspect]
     Active Substance: AMBRISENTAN
     Indication: TOXICITY TO VARIOUS AGENTS
  19. WARFARIN [Concomitant]
     Active Substance: WARFARIN
  20. SPIRONOLACTONE. [Concomitant]
     Active Substance: SPIRONOLACTONE
  21. TYLENOL [Concomitant]
     Active Substance: ACETAMINOPHEN
  22. CEFTIN [Concomitant]
     Active Substance: CEFUROXIME AXETIL

REACTIONS (9)
  - Joint instability [Unknown]
  - Acute kidney injury [Unknown]
  - Infection [Recovering/Resolving]
  - Hypovolaemia [Unknown]
  - Fall [Unknown]
  - Haemarthrosis [Unknown]
  - Hyperkalaemia [Recovering/Resolving]
  - Fall [Unknown]
  - Cellulitis [Unknown]

NARRATIVE: CASE EVENT DATE: 20180609
